FAERS Safety Report 24167998 (Version 2)
Quarter: 2024Q3

REPORT INFORMATION
  Report Type: Report from Study
  Country: US (occurrence: US)
  Receive Date: 20240802
  Receipt Date: 20240821
  Transmission Date: 20241017
  Serious: Yes (Other)
  Sender: SANOFI AVENTIS
  Company Number: US-SA-SAC20240729001704

PATIENT
  Age: 73 Year
  Sex: Female
  Weight: 83 kg

DRUGS (12)
  1. DUPILUMAB [Suspect]
     Active Substance: DUPILUMAB
     Indication: Dermatitis
     Dosage: 300 MG, QOW
     Route: 058
     Dates: start: 20210310, end: 2024
  2. DUPILUMAB [Suspect]
     Active Substance: DUPILUMAB
     Dosage: UNK
     Dates: start: 2024
  3. NIACINAMIDE [Concomitant]
     Active Substance: NIACINAMIDE
     Dosage: UNK
  4. OPZELURA [Concomitant]
     Active Substance: RUXOLITINIB PHOSPHATE
  5. TERBINAFINE HYDROCHLORIDE [Concomitant]
     Active Substance: TERBINAFINE HYDROCHLORIDE
     Dosage: UNK
  6. ATORVASTATIN CALCIUM [Concomitant]
     Active Substance: ATORVASTATIN CALCIUM
  7. VITAMIN D NOS [Concomitant]
     Active Substance: CHOLECALCIFEROL\ERGOCALCIFEROL
  8. LOSARTAN POTASSIUM [Concomitant]
     Active Substance: LOSARTAN POTASSIUM
  9. HYDROCHLOROTHIAZIDE [Concomitant]
     Active Substance: HYDROCHLOROTHIAZIDE
  10. ZYRTEC [Concomitant]
     Active Substance: CETIRIZINE HYDROCHLORIDE
  11. AVEENO [Concomitant]
     Active Substance: DIMETHICONE\HOMOSALATE\OCTINOXATE\OCTISALATE\TITANIUM DIOXIDE
  12. MODERNA COVID-19 VACCINE [Concomitant]
     Active Substance: ELASOMERAN

REACTIONS (11)
  - Hip arthroplasty [Unknown]
  - Rhinorrhoea [Unknown]
  - Hyperhidrosis [Unknown]
  - Cough [Unknown]
  - Impaired healing [Unknown]
  - Malaise [Unknown]
  - Dermatitis [Unknown]
  - Oropharyngeal pain [Unknown]
  - Rash [Not Recovered/Not Resolved]
  - Product dose omission issue [Unknown]
  - Product use in unapproved indication [Unknown]

NARRATIVE: CASE EVENT DATE: 20240101
